FAERS Safety Report 4828454-7 (Version None)
Quarter: 2005Q4

REPORT INFORMATION
  Report Type: 
  Country: None (occurrence: None)
  Receive Date: 20051115
  Receipt Date: 20051104
  Transmission Date: 20060501
  Serious: Yes (Death)
  Sender: FDA-Public Use
  Company Number: MX-JNJFOC-20051102599

PATIENT
  Age: 3 Year
  Sex: Female

DRUGS (2)
  1. ACETAMINOPHEN [Suspect]
  2. ACETAMINOPHEN [Suspect]
     Indication: DRUG USE FOR UNKNOWN INDICATION

REACTIONS (4)
  - DRUG TOXICITY [None]
  - HEPATIC ENCEPHALOPATHY [None]
  - IATROGENIC INJURY [None]
  - INCORRECT DRUG DOSAGE FORM ADMINISTERED [None]
